FAERS Safety Report 14717981 (Version 2)
Quarter: 2020Q4

REPORT INFORMATION
  Report Type: Spontaneous
  Country: US (occurrence: US)
  Receive Date: 20180404
  Receipt Date: 20201029
  Transmission Date: 20210113
  Serious: No
  Sender: FDA-Public Use
  Company Number: US-SA-2018SA058998

PATIENT

DRUGS (4)
  1. DUPIXENT [Suspect]
     Active Substance: DUPILUMAB
     Indication: DERMATITIS ATOPIC
     Dosage: 300 MG,QOW
     Route: 058
     Dates: start: 2017
  2. HYDROCORTISONE. [Concomitant]
     Active Substance: HYDROCORTISONE
  3. DUPIXENT [Suspect]
     Active Substance: DUPILUMAB
     Indication: DERMATITIS ALLERGIC
  4. CLOBETASOL [Concomitant]
     Active Substance: CLOBETASOL

REACTIONS (18)
  - Lacrimation increased [Not Recovered/Not Resolved]
  - Fatigue [Unknown]
  - Eczema [Unknown]
  - Skin fissures [Unknown]
  - Pyrexia [Unknown]
  - Cough [Unknown]
  - Pruritus [Unknown]
  - Dry eye [Not Recovered/Not Resolved]
  - Intraocular pressure test abnormal [Unknown]
  - Eye pruritus [Not Recovered/Not Resolved]
  - Blood cholesterol increased [Unknown]
  - Nasopharyngitis [Unknown]
  - Dry skin [Unknown]
  - Head discomfort [Unknown]
  - Product dose omission issue [Unknown]
  - Eye irritation [Not Recovered/Not Resolved]
  - Influenza [Unknown]
  - Respiratory tract congestion [Unknown]

NARRATIVE: CASE EVENT DATE: 201801
